FAERS Safety Report 9347694 (Version 1)
Quarter: 2013Q2

REPORT INFORMATION
  Report Type: Spontaneous
  Country: FR (occurrence: FR)
  Receive Date: 20130614
  Receipt Date: 20130614
  Transmission Date: 20140414
  Serious: Yes (Hospitalization)
  Sender: FDA-Public Use
  Company Number: FR-ASTRAZENECA-2013SE41164

PATIENT
  Age: 23587 Day
  Sex: Female

DRUGS (21)
  1. INEXIUM [Suspect]
     Route: 048
     Dates: start: 20130317, end: 20130401
  2. TIENAM [Suspect]
     Route: 042
     Dates: start: 20130314, end: 20130331
  3. ZYVOXID [Suspect]
     Route: 042
     Dates: start: 20130317, end: 20130328
  4. HYPNOVEL [Suspect]
     Route: 042
     Dates: start: 20130316, end: 20130328
  5. SOLUDACTONE [Suspect]
     Route: 042
     Dates: start: 20130321, end: 20130330
  6. VFEND [Suspect]
     Route: 042
     Dates: start: 20130317, end: 20130329
  7. NOXAFIL [Concomitant]
     Dates: start: 201208
  8. ZELITREX [Concomitant]
     Dates: start: 20121106
  9. EXJADE [Concomitant]
  10. DELURSAN [Concomitant]
     Dates: start: 20130214
  11. TAVANIC [Concomitant]
     Dates: start: 20130227, end: 20130309
  12. AMOXICILLINE [Concomitant]
     Dates: start: 20130227, end: 20130309
  13. FORTUM [Concomitant]
     Dates: start: 20130309, end: 20130316
  14. CIFLOX [Concomitant]
     Dates: start: 20130309, end: 20130316
  15. AMBISOME [Concomitant]
     Dates: start: 20130311, end: 20130316
  16. VANCOMYCINE [Concomitant]
     Dates: start: 20130311, end: 20130317
  17. AMIKLIN [Concomitant]
     Dates: start: 20130316, end: 20130317
  18. FENTANYL [Concomitant]
     Route: 042
     Dates: start: 20130316
  19. RIFADINE [Concomitant]
     Dates: start: 20130318, end: 20130320
  20. LASILIX [Concomitant]
     Dates: start: 20130320, end: 20130323
  21. LASILIX [Concomitant]
     Dates: start: 20130326, end: 20130330

REACTIONS (6)
  - Eosinophilia [Recovered/Resolved]
  - Drug reaction with eosinophilia and systemic symptoms [Unknown]
  - Bacterial infection [Unknown]
  - Rash maculo-papular [Recovered/Resolved]
  - Cholestasis [Not Recovered/Not Resolved]
  - Blood creatinine increased [Unknown]
